FAERS Safety Report 10036412 (Version 2)
Quarter: 2014Q1

REPORT INFORMATION
  Report Type: Report from Study
  Country: US (occurrence: US)
  Receive Date: 20140325
  Receipt Date: 20140325
  Transmission Date: 20141002
  Serious: Yes (Death, Hospitalization, Other)
  Sender: FDA-Public Use
  Company Number: US-TEVA-461559USA

PATIENT
  Age: 58 Year
  Sex: Male

DRUGS (6)
  1. CLOZAPINE [Suspect]
     Indication: SCHIZOPHRENIA, UNDIFFERENTIATED TYPE
     Dosage: 400 MILLIGRAM DAILY;
     Route: 048
  2. DEPAKOTE [Concomitant]
     Indication: CONVULSION
     Dosage: 1000 MILLIGRAM DAILY;
  3. HALDOL [Concomitant]
     Indication: ABNORMAL BEHAVIOUR
     Dosage: 6 MILLIGRAM DAILY;
     Dates: end: 201312
  4. RISPERDAL [Concomitant]
     Indication: ABNORMAL BEHAVIOUR
     Dosage: 1 MILLIGRAM DAILY;
  5. COGENTIN [Concomitant]
     Indication: DROOLING
     Dosage: 4 MILLIGRAM DAILY;
     Dates: end: 201312
  6. CELEXA [Concomitant]
     Indication: ANXIETY
     Dosage: 80 MILLIGRAM DAILY;

REACTIONS (3)
  - Convulsion [Unknown]
  - Loss of consciousness [Unknown]
  - Death [Fatal]
